FAERS Safety Report 9040839 (Version 1)
Quarter: 2013Q1

REPORT INFORMATION
  Report Type: Spontaneous
  Country: US (occurrence: None)
  Receive Date: 20130123
  Receipt Date: 20130123
  Transmission Date: 20140127
  Serious: Yes (Hospitalization)
  Sender: FDA-Public Use
  Company Number: None

PATIENT
  Age: 80 Year
  Sex: Male
  Weight: 66 kg

DRUGS (2)
  1. DIVALPROEX [Suspect]
     Indication: BIPOLAR DISORDER
     Dosage: 500 MG  HS  PO
     Route: 048
     Dates: start: 20121030, end: 20121204
  2. DIVALPROEX [Suspect]
     Indication: MANIA
     Dosage: 500 MG  HS  PO
     Route: 048
     Dates: start: 20121030, end: 20121204

REACTIONS (5)
  - Liver function test abnormal [None]
  - Thrombocytopenia [None]
  - Amylase increased [None]
  - Lipase increased [None]
  - Blood alkaline phosphatase increased [None]
